FAERS Safety Report 24312390 (Version 1)
Quarter: 2024Q3

REPORT INFORMATION
  Report Type: Spontaneous
  Country: US (occurrence: None)
  Receive Date: 20240911
  Receipt Date: 20240911
  Transmission Date: 20241017
  Serious: No
  Sender: Public
  Company Number: None

PATIENT
  Age: 61 Year
  Sex: Female

DRUGS (1)
  1. TALTZ [Suspect]
     Active Substance: IXEKIZUMAB
     Indication: Psoriatic arthropathy
     Dosage: FREQUENCY: INJECT 80MG SUBCUTANEOUSLY EVERY 2 WEEKS AT WEEKS 4-10 ?
     Route: 058
     Dates: start: 202405

REACTIONS (2)
  - Kidney infection [None]
  - Intentional dose omission [None]
